FAERS Safety Report 8592010-8 (Version None)
Quarter: 2012Q3

REPORT INFORMATION
  Report Type: 
  Country: None (occurrence: None)
  Receive Date: 20120814
  Receipt Date: 20120809
  Transmission Date: 20120928
  Serious: Yes (Hospitalization)
  Sender: FDA-Public Use
  Company Number: FR-PFIZER INC-2012194036

PATIENT
  Age: 87 Year
  Sex: Female

DRUGS (4)
  1. ZYVOX [Suspect]
     Indication: ESCHERICHIA INFECTION
     Dosage: UNK
     Route: 042
     Dates: start: 20120717, end: 20120721
  2. AUGMENTIN '500' [Concomitant]
     Indication: ESCHERICHIA INFECTION
     Dosage: UNK
     Dates: start: 20120703, end: 20120711
  3. TAZOBACTAM [Suspect]
     Indication: ESCHERICHIA INFECTION
     Dosage: UNK
     Route: 042
     Dates: start: 20120717, end: 20120721
  4. ROCEPHIN [Concomitant]
     Indication: ESCHERICHIA INFECTION
     Dosage: UNK
     Dates: end: 20120703

REACTIONS (2)
  - AGITATION [None]
  - CONFUSIONAL STATE [None]
